FAERS Safety Report 5847496-6 (Version None)
Quarter: 2008Q3

REPORT INFORMATION
  Report Type: 
  Country: None (occurrence: None)
  Receive Date: 20080814
  Receipt Date: 20080812
  Transmission Date: 20090109
  Serious: Yes (Hospitalization, Disabling)
  Sender: FDA-Public Use
  Company Number: 031685

PATIENT
  Age: 55 Year
  Sex: Female

DRUGS (6)
  1. PACLITAXEL [Suspect]
     Indication: BREAST CANCER
     Dosage: 80 MG/M2, WEEKLY X 2 CYCLES, INTRAVENOUS
     Route: 042
  2. FLUOROURACIL [Suspect]
     Indication: BREAST CANCER
     Dosage: ONE CYCLE, UNK
  3. EPIRUBICIN [Suspect]
     Indication: BREAST CANCER
     Dosage: ONE CYCLE, UNK
  4. CYCLOPHOSPHAMIDE [Suspect]
     Indication: BREAST CANCER
     Dosage: ONE CYCLE, UNK
  5. DEXAMETHASONE TAB [Concomitant]
  6. ANALGESICS [Concomitant]

REACTIONS (9)
  - ABASIA [None]
  - BACK PAIN [None]
  - BLOOD BILIRUBIN INCREASED [None]
  - BLOOD LACTATE DEHYDROGENASE INCREASED [None]
  - HYPOXIA [None]
  - MUSCLE SPASMS [None]
  - MYALGIA [None]
  - PNEUMONIA [None]
  - SICKLE CELL ANAEMIA WITH CRISIS [None]
